FAERS Safety Report 9502239 (Version 1)
Quarter: 2013Q3

REPORT INFORMATION
  Report Type: Report from Study
  Country: US (occurrence: US)
  Receive Date: 20130906
  Receipt Date: 20130906
  Transmission Date: 20140515
  Serious: Yes (Other)
  Sender: FDA-Public Use
  Company Number: US-009507513-1308USA012026

PATIENT
  Age: 73 Year
  Sex: Male

DRUGS (3)
  1. DECADRON [Suspect]
     Indication: PLASMA CELL MYELOMA
     Dosage: 10 MG, QW
     Route: 042
     Dates: start: 20130510, end: 20130516
  2. VELCADE [Suspect]
     Indication: PLASMA CELL MYELOMA
     Dosage: 1.3 MG/M2, QW
     Route: 058
     Dates: start: 20130510, end: 20130516
  3. CYTOXAN [Suspect]
     Indication: PLASMA CELL MYELOMA
     Dosage: 320 MG, QW
     Route: 042
     Dates: start: 20130510, end: 20130516

REACTIONS (4)
  - Dyspnoea [Unknown]
  - Chills [Unknown]
  - Cough [Unknown]
  - Pyrexia [Unknown]
